FAERS Safety Report 4644796-2 (Version None)
Quarter: 2005Q2

REPORT INFORMATION
  Report Type: 
  Country: None (occurrence: None)
  Receive Date: 20050426
  Receipt Date: 20050411
  Transmission Date: 20051028
  Serious: Yes (Hospitalization)
  Sender: FDA-Public Use
  Company Number: CH-BOEHRINGER INGELHEIM PHARMACEUTICALS, INC.-2005-DE-01405GD

PATIENT
  Age: 57 Year
  Sex: Male

DRUGS (14)
  1. PARACETAMOL [Suspect]
     Dosage: DAILY DOSES OF 2 G, 3 G, 1 G, 3 G, AND 1 G ON 5 CONSECUTIVE DAYS AFTER SURGERY WITHOUT INTERRUPTION
  2. FUROSEMIDE [Suspect]
  3. FUROSEMIDE [Suspect]
  4. AMIODARONE HCL [Suspect]
     Indication: ATRIAL FIBRILLATION
     Dosage: BOLUS OF 150 MG WITHIN 30 MIN FOLLOWED BY INFUSION OF 60 MG/H FOR 6 HOURS AND THEREAFTER 30 MG/H
     Route: 042
  5. CAPTOPRIL [Suspect]
  6. METOPROLOL TARTRATE [Suspect]
     Route: 042
  7. ACETYL SALICYLIC ACID USP BAT [Concomitant]
  8. LOW-MOLECULAR WEIGHT HEPARIN [Concomitant]
  9. TORSEMIDE [Concomitant]
  10. NITROGLYCERIN [Concomitant]
     Dosage: 30-50 MCG/MIN
     Route: 042
  11. DIGOXIN [Concomitant]
  12. VENLAFAXINE [Concomitant]
  13. BISOPROLOL FUMARATE [Concomitant]
  14. ENALAPRIL [Concomitant]

REACTIONS (3)
  - ATRIAL FIBRILLATION [None]
  - HEPATOTOXICITY [None]
  - TACHYCARDIA [None]
